FAERS Safety Report 10355600 (Version 3)
Quarter: 2015Q1

REPORT INFORMATION
  Report Type: Spontaneous
  Country: JP (occurrence: JP)
  Receive Date: 20140731
  Receipt Date: 20150128
  Transmission Date: 20150720
  Serious: Yes (Hospitalization)
  Sender: FDA-Public Use
  Company Number: JP-ASTRAZENECA-2014SE45346

PATIENT
  Age: 48 Year
  Sex: Female

DRUGS (7)
  1. CLARITHROMYCIN. [Suspect]
     Active Substance: CLARITHROMYCIN
     Route: 048
     Dates: start: 20140605
  2. CALONAL [Suspect]
     Active Substance: ACETAMINOPHEN
     Route: 048
     Dates: start: 20140605
  3. MEDICON [Suspect]
     Active Substance: DEXTROMETHORPHAN HYDROBROMIDE
     Route: 048
     Dates: start: 20140507, end: 20140605
  4. ORENGEDOKUTO [Suspect]
     Active Substance: HERBALS
     Route: 048
  5. COUGHCODE-N [Suspect]
     Active Substance: ACETAMINOPHEN\BROMISOVAL\DIHYDROCODEINE PHOSPHATE\DIPHENHYDRAMINE SALICYLATE\DYPHYLLINE\METHYLEPHEDRINE HYDROCHLORIDE, (+/-)-
     Route: 048
     Dates: start: 20140507, end: 20140605
  6. CRESTOR [Suspect]
     Active Substance: ROSUVASTATIN CALCIUM
     Indication: HYPERLIPIDAEMIA
     Route: 048
  7. CODEINE PHOSPHATE HYDRATE [Suspect]
     Active Substance: CODEINE PHOSPHATE
     Route: 065
     Dates: start: 20140605

REACTIONS (3)
  - Collagen disorder [Unknown]
  - Blood creatine phosphokinase increased [Unknown]
  - Interstitial lung disease [Unknown]

NARRATIVE: CASE EVENT DATE: 201405
